FAERS Safety Report 9920377 (Version 1)
Quarter: 2014Q1

REPORT INFORMATION
  Report Type: Spontaneous
  Country: IT (occurrence: IT)
  Receive Date: 20140224
  Receipt Date: 20140224
  Transmission Date: 20141002
  Serious: Yes (Other)
  Sender: FDA-Public Use
  Company Number: PHHY2014IT018704

PATIENT
  Age: 80 Year
  Sex: Male

DRUGS (6)
  1. NITRODERM TTS [Suspect]
     Dosage: 10 MG, DAILY
     Route: 062
     Dates: start: 20130101, end: 20131205
  2. HYDROCHLOROTHIAZIDE [Suspect]
     Dosage: UNK UKN, UNK
     Dates: start: 20130101, end: 20131205
  3. CANDESARTAN CILEXETIL [Suspect]
     Dosage: 8 MG, DAILY
     Route: 048
     Dates: start: 20130101, end: 20131205
  4. LOBIVON [Suspect]
     Dosage: 5 MG, DAILY
     Route: 048
     Dates: start: 20130101, end: 20131205
  5. ANSIOLIN [Suspect]
     Dosage: 5 DRP, DAILY
     Route: 048
     Dates: start: 20130101, end: 20131205
  6. ALLOPURINOL [Concomitant]
     Dosage: 300 MG, UNK
     Route: 048

REACTIONS (1)
  - Syncope [Recovering/Resolving]
